FAERS Safety Report 11502244 (Version 1)
Quarter: 2015Q3

REPORT INFORMATION
  Report Type: Spontaneous
  Country: KR (occurrence: KR)
  Receive Date: 20150914
  Receipt Date: 20150914
  Transmission Date: 20151125
  Serious: Yes (Death)
  Sender: FDA-Public Use
  Company Number: PHHY2015KR109896

PATIENT
  Sex: Male

DRUGS (3)
  1. CICLOSPORIN [Suspect]
     Active Substance: CYCLOSPORINE
     Indication: EPSTEIN-BARR VIRUS INFECTION
     Route: 065
  2. FAMCICLOVIR. [Suspect]
     Active Substance: FAMCICLOVIR
     Indication: EPSTEIN-BARR VIRUS INFECTION
     Route: 065
  3. FLUDARABINE [Suspect]
     Active Substance: FLUDARABINE PHOSPHATE
     Indication: EPSTEIN-BARR VIRUS INFECTION
     Route: 065

REACTIONS (2)
  - Lymphoma [Fatal]
  - Drug ineffective [Unknown]
